FAERS Safety Report 6558070-0 (Version None)
Quarter: 2010Q1

REPORT INFORMATION
  Report Type: 
  Country: None (occurrence: None)
  Receive Date: 20100129
  Receipt Date: 20100118
  Transmission Date: 20100710
  Serious: Yes (Life-Threatening, Hospitalization)
  Sender: FDA-Public Use
  Company Number: US-BAXTER-2010BH000161

PATIENT
  Age: 39 Year
  Sex: Male

DRUGS (1)
  1. CLINIMIX 2.75/10 SULFITE FREE IN DEXTROSE 10% [Suspect]
     Indication: MEDICAL DIET
     Route: 042
     Dates: start: 20091216

REACTIONS (2)
  - PYREXIA [None]
  - STAPHYLOCOCCAL INFECTION [None]
